FAERS Safety Report 19068083 (Version 1)
Quarter: 2021Q1

REPORT INFORMATION
  Report Type: Spontaneous
  Country: US (occurrence: US)
  Receive Date: 20210329
  Receipt Date: 20210329
  Transmission Date: 20210420
  Serious: Yes (Life-Threatening, Other)
  Sender: FDA-Public Use
  Company Number: US-PURACAP-US-2021EPCLIT00295

PATIENT
  Age: 55 Year
  Sex: Female

DRUGS (18)
  1. CALCIUM CHLORIDE. [Interacting]
     Active Substance: CALCIUM CHLORIDE
     Indication: RESPIRATORY FAILURE
  2. EPINEPHRINE. [Interacting]
     Active Substance: EPINEPHRINE
     Indication: RESPIRATORY FAILURE
  3. NOREPINEPHRINE. [Interacting]
     Active Substance: NOREPINEPHRINE
     Indication: RESPIRATORY FAILURE
  4. PHENYLEPHRINE [Interacting]
     Active Substance: PHENYLEPHRINE HYDROCHLORIDE
     Dosage: 130 MCG/MIN
     Route: 065
  5. INSULIN [Interacting]
     Active Substance: INSULIN NOS
     Indication: RESPIRATORY FAILURE
  6. GLUCAGON. [Interacting]
     Active Substance: GLUCAGON
     Indication: RESPIRATORY FAILURE
  7. NOREPINEPHRINE. [Interacting]
     Active Substance: NOREPINEPHRINE
     Dosage: 130 MCG/MIN
     Route: 065
  8. PHENYLEPHRINE [Interacting]
     Active Substance: PHENYLEPHRINE HYDROCHLORIDE
     Indication: RESPIRATORY FAILURE
  9. GLUCAGON. [Interacting]
     Active Substance: GLUCAGON
     Route: 065
  10. SODIUM BICARBONATE. [Interacting]
     Active Substance: SODIUM BICARBONATE
     Dosage: 50 MEQ EACH
     Route: 065
  11. INSULIN [Interacting]
     Active Substance: INSULIN NOS
     Dosage: 8 UNITS/ KG/HR
     Route: 065
  12. CALCIUM CHLORIDE. [Interacting]
     Active Substance: CALCIUM CHLORIDE
     Route: 065
  13. METHYLENE BLUE. [Interacting]
     Active Substance: METHYLENE BLUE
     Route: 040
  14. AMLODIPINE [Suspect]
     Active Substance: AMLODIPINE BESYLATE
     Indication: PRODUCT USED FOR UNKNOWN INDICATION
     Route: 065
  15. SODIUM BICARBONATE. [Interacting]
     Active Substance: SODIUM BICARBONATE
     Indication: RESPIRATORY FAILURE
  16. EPINEPHRINE. [Interacting]
     Active Substance: EPINEPHRINE
     Dosage: 100 MCG/MIN
     Route: 065
  17. VASOPRESSIN. [Interacting]
     Active Substance: VASOPRESSIN
     Dosage: 0.08 UNITS/MIN
     Route: 065
  18. VASOPRESSIN. [Interacting]
     Active Substance: VASOPRESSIN
     Indication: RESPIRATORY FAILURE

REACTIONS (4)
  - Overdose [Unknown]
  - Toxicity to various agents [Unknown]
  - Respiratory failure [Unknown]
  - Circulatory collapse [Unknown]
